FAERS Safety Report 11647285 (Version 1)
Quarter: 2015Q4

REPORT INFORMATION
  Report Type: Report from Study
  Country: BR (occurrence: BR)
  Receive Date: 20151021
  Receipt Date: 20151021
  Transmission Date: 20160304
  Serious: Yes (Hospitalization, Other)
  Sender: FDA-Public Use
  Company Number: BR-ROCHE-1648647

PATIENT
  Sex: Female
  Weight: 70 kg

DRUGS (2)
  1. ACTEMRA [Suspect]
     Active Substance: TOCILIZUMAB
     Indication: RHEUMATOID ARTHRITIS
     Dosage: 24/SEP/2015: RECENT DOSE OF TOCILIZUMAB
     Route: 042
     Dates: start: 20140815
  2. METHOTREXATE [Concomitant]
     Active Substance: METHOTREXATE
     Route: 065

REACTIONS (3)
  - Arthropathy [Unknown]
  - Arthralgia [Not Recovered/Not Resolved]
  - Bone disorder [Recovering/Resolving]
